FAERS Safety Report 13464363 (Version 1)
Quarter: 2017Q2

REPORT INFORMATION
  Report Type: Spontaneous
  Country: US (occurrence: US)
  Receive Date: 20170420
  Receipt Date: 20170420
  Transmission Date: 20170830
  Serious: Yes (Hospitalization, Other)
  Sender: FDA-Public Use
  Company Number: US-ROCHE-727461

PATIENT
  Age: 16 Year
  Sex: Female
  Weight: 58.1 kg

DRUGS (3)
  1. ACCUTANE [Suspect]
     Active Substance: ISOTRETINOIN
     Dosage: TAKE ON CAPSULE DAILY ALTERNATING WITH ONE CAPSULE TWICE A DAY.
     Route: 048
     Dates: start: 1999, end: 2000
  2. ORTHO CYCLEN [Concomitant]
     Active Substance: ETHINYL ESTRADIOL\NORGESTIMATE
     Indication: CONTRACEPTION
  3. ACCUTANE [Suspect]
     Active Substance: ISOTRETINOIN
     Indication: ACNE
     Route: 048
     Dates: start: 1996, end: 1997

REACTIONS (11)
  - Gastrointestinal injury [Unknown]
  - Viral pharyngitis [Unknown]
  - Contusion [Unknown]
  - Upper respiratory tract infection [Unknown]
  - Colitis ulcerative [Unknown]
  - Depression [Unknown]
  - Irritable bowel syndrome [Unknown]
  - Bronchitis [Unknown]
  - Skin abrasion [Unknown]
  - Sinusitis [Unknown]
  - Colitis [Unknown]

NARRATIVE: CASE EVENT DATE: 19960129
